FAERS Safety Report 7918872-2 (Version None)
Quarter: 2011Q4

REPORT INFORMATION
  Report Type: 
  Country: None (occurrence: None)
  Receive Date: 20111116
  Receipt Date: 20111109
  Transmission Date: 20120403
  Serious: Yes (Death, Other)
  Sender: FDA-Public Use
  Company Number: PHHY2011GB76322

PATIENT
  Age: 92 Year
  Sex: Female
  Weight: 64 kg

DRUGS (15)
  1. PREDNISOLONE [Suspect]
     Indication: ARTERITIS
     Dosage: 40 MG, UNK
     Route: 065
     Dates: start: 20110517
  2. CALCIUM CARBONATE [Concomitant]
  3. DOUBLEBASE [Concomitant]
  4. ZIPZOC [Concomitant]
  5. INADINE [Concomitant]
  6. LATANOPROST [Concomitant]
  7. CLOPIDOGREL [Interacting]
     Indication: CEREBROVASCULAR ACCIDENT PROPHYLAXIS
     Dates: start: 20110505, end: 20110604
  8. LANSOPRAZOLE [Concomitant]
  9. FUROSEMIDE [Concomitant]
  10. ALENDRONIC ACID [Concomitant]
  11. DORZOLAMIDE HYDROCHLORIDE [Concomitant]
  12. FLOXACILLIN SODIUM [Concomitant]
  13. METFORMIN HCL [Concomitant]
  14. PREDNISOLONE [Interacting]
     Dosage: 10 MG, UNK
     Route: 065
  15. CANDESARTAN CILEXETIL [Concomitant]

REACTIONS (7)
  - RECTAL HAEMORRHAGE [None]
  - DIZZINESS [None]
  - SYNCOPE [None]
  - VOMITING [None]
  - DRUG INTERACTION [None]
  - CIRCULATORY COLLAPSE [None]
  - DUODENAL ULCER HAEMORRHAGE [None]
